FAERS Safety Report 23925095 (Version 1)
Quarter: 2024Q2

REPORT INFORMATION
  Report Type: Spontaneous
  Country: RS (occurrence: RS)
  Receive Date: 20240531
  Receipt Date: 20240531
  Transmission Date: 20240716
  Serious: Yes (Other)
  Sender: FDA-Public Use
  Company Number: RS-PFIZER INC-PV202400070502

PATIENT
  Sex: Female

DRUGS (16)
  1. IBRANCE [Suspect]
     Active Substance: PALBOCICLIB
     Indication: Breast cancer metastatic
     Dosage: 125 MG
     Dates: start: 202212, end: 202304
  2. IBRANCE [Suspect]
     Active Substance: PALBOCICLIB
     Dosage: 100 MG, CYCLIC
     Dates: start: 202304
  3. ARIMIDEX [Concomitant]
     Active Substance: ANASTROZOLE
     Dosage: UNK
  4. VERAPAMIL [Concomitant]
     Active Substance: VERAPAMIL HYDROCHLORIDE
     Indication: Supraventricular tachycardia
  5. TENSEC [Concomitant]
     Dosage: IN THE MORNING
  6. TENSEC [Concomitant]
     Dosage: IN THE MORNING
  7. MIDOL [ACETYLSALICYLIC ACID] [Concomitant]
     Dosage: NOON
  8. PRILINDA [Concomitant]
     Dosage: 2.5 MG, 2X/DAY
  9. BROMAZEPAM [Concomitant]
     Active Substance: BROMAZEPAM
     Dosage: IN THE EVENING
  10. LASIX [Concomitant]
     Active Substance: FUROSEMIDE
     Dosage: UNK, CYCLIC, 1XDAY, ON 2ND DAY
  11. FLEKAINID [Concomitant]
     Dosage: 100 MG, 1X/DAY
  12. BIPREZ [Concomitant]
     Dosage: IN THE MORNING
  13. BIPREZ [Concomitant]
     Dosage: 1/2+0+0
  14. CODEXY [Concomitant]
  15. HYDROMORPHONE HYDROCHLORIDE [Concomitant]
     Active Substance: HYDROMORPHONE HYDROCHLORIDE
  16. REPAGLINID ACTAVIS [Concomitant]

REACTIONS (15)
  - Asphyxia [Unknown]
  - Atrial fibrillation [Unknown]
  - Electrocardiogram QT prolonged [Recovered/Resolved]
  - Neutrophil count decreased [Unknown]
  - White blood cell count decreased [Unknown]
  - Platelet count decreased [Unknown]
  - Supraventricular tachycardia [Recovered/Resolved]
  - Gait disturbance [Unknown]
  - Dizziness [Unknown]
  - Hypotension [Recovered/Resolved]
  - Headache [Unknown]
  - Hypoaesthesia [Unknown]
  - Dyspnoea [Unknown]
  - Asthenia [Unknown]
  - Heart rate increased [Unknown]

NARRATIVE: CASE EVENT DATE: 20221201
